FAERS Safety Report 4491782-1 (Version None)
Quarter: 2004Q4

REPORT INFORMATION
  Report Type: 
  Country: None (occurrence: None)
  Receive Date: 20041101
  Receipt Date: 20041018
  Transmission Date: 20050328
  Serious: No
  Sender: FDA-Public Use
  Company Number: 2002UW00302

PATIENT
  Age: 16 Month
  Sex: Male
  Weight: 12.7007 kg

DRUGS (6)
  1. DIPRIVAN [Suspect]
     Indication: SEDATION
     Dosage: 12 MG IV
     Route: 042
     Dates: start: 19910416, end: 19910417
  2. DIPRIVAN [Suspect]
     Indication: SEDATION
     Dosage: 15 MG IV
     Route: 042
     Dates: start: 19910417, end: 19910419
  3. DIPRIVAN [Suspect]
     Indication: SEDATION
     Dosage: 24 MG IV
     Route: 042
     Dates: start: 19910419, end: 19910419
  4. FENTANYL [Concomitant]
  5. ALUMINUM HYDROXIDE AND MAGNESIUM TRISILICATE [Concomitant]
  6. VERSED [Concomitant]

REACTIONS (49)
  - ACUTE RESPIRATORY DISTRESS SYNDROME [None]
  - BALANCE DISORDER [None]
  - CARDIO-RESPIRATORY ARREST [None]
  - CEREBRAL PALSY [None]
  - CHROMATURIA [None]
  - CIRCULATORY COLLAPSE [None]
  - COMA [None]
  - DEVELOPMENTAL COORDINATION DISORDER [None]
  - DEVELOPMENTAL DELAY [None]
  - DIFFICULTY IN WALKING [None]
  - DILATATION VENTRICULAR [None]
  - DROOLING [None]
  - DRUG TOXICITY [None]
  - DYSKINESIA [None]
  - ENCEPHALOPATHY [None]
  - EXTENSOR PLANTAR RESPONSE [None]
  - FOOT DEFORMITY [None]
  - GAIT DISTURBANCE [None]
  - GENERAL PHYSICAL HEALTH DETERIORATION [None]
  - HAEMORRHAGE [None]
  - HEMIPARESIS [None]
  - HYPERREFLEXIA [None]
  - HYPERTONIA [None]
  - HYPOXIA [None]
  - HYPOXIC ENCEPHALOPATHY [None]
  - ILLITERACY [None]
  - INJURY [None]
  - JOINT HYPEREXTENSION [None]
  - JOINT RANGE OF MOTION DECREASED [None]
  - LARYNGEAL OEDEMA [None]
  - LOWER LIMB DEFORMITY [None]
  - MUSCULOSKELETAL STIFFNESS [None]
  - MYOPIA [None]
  - NODAL ARRHYTHMIA [None]
  - PNEUMONIA ASPIRATION [None]
  - PNEUMOTHORAX [None]
  - PROCEDURAL COMPLICATION [None]
  - PULMONARY OEDEMA [None]
  - PYREXIA [None]
  - RALES [None]
  - RESPIRATORY DISORDER [None]
  - RHYTHM IDIOVENTRICULAR [None]
  - SEPSIS [None]
  - TALIPES [None]
  - TRICUSPID VALVE INCOMPETENCE [None]
  - UNRESPONSIVE TO PAIN STIMULI [None]
  - URINARY RETENTION [None]
  - VENTRICULAR DYSFUNCTION [None]
  - VOMITING [None]
